FAERS Safety Report 18434960 (Version 1)
Quarter: 2020Q4

REPORT INFORMATION
  Report Type: Spontaneous
  Country: US (occurrence: US)
  Receive Date: 20201027
  Receipt Date: 20201027
  Transmission Date: 20210114
  Serious: Yes (Hospitalization)
  Sender: FDA-Public Use
  Company Number: None

PATIENT
  Sex: Female

DRUGS (1)
  1. GLEEVEC [Suspect]
     Active Substance: IMATINIB MESYLATE
     Indication: CHRONIC MYELOID LEUKAEMIA
     Route: 048
     Dates: start: 20121212

REACTIONS (7)
  - Gastrointestinal motility disorder [None]
  - Pain [None]
  - Memory impairment [None]
  - Eating disorder [None]
  - Sciatica [None]
  - Intervertebral disc protrusion [None]
  - Spinal stenosis [None]
